FAERS Safety Report 7025824-6 (Version None)
Quarter: 2010Q4

REPORT INFORMATION
  Report Type: 
  Country: None (occurrence: None)
  Receive Date: 20101004
  Receipt Date: 20100924
  Transmission Date: 20110411
  Serious: No
  Sender: FDA-Public Use
  Company Number: US-BIOGENIDEC-2010BI009613

PATIENT
  Age: 49 Year
  Sex: Male

DRUGS (1)
  1. TYSABRI [Suspect]
     Indication: MULTIPLE SCLEROSIS
     Route: 042
     Dates: start: 20090818, end: 20100625

REACTIONS (6)
  - GAIT DISTURBANCE [None]
  - MULTIPLE SCLEROSIS [None]
  - PAIN [None]
  - SCAR [None]
  - SPINAL DISORDER [None]
  - TEMPERATURE INTOLERANCE [None]
